FAERS Safety Report 15470229 (Version 1)
Quarter: 2018Q4

REPORT INFORMATION
  Report Type: Report from Study
  Country: FR (occurrence: FR)
  Receive Date: 20181005
  Receipt Date: 20181005
  Transmission Date: 20190205
  Serious: Yes (Hospitalization)
  Sender: FDA-Public Use
  Company Number: FR-AGIOS-1809FR00231

PATIENT
  Age: 77 Year
  Sex: Female
  Weight: 49 kg

DRUGS (11)
  1. COVERSYL                           /00790702/ [Concomitant]
     Active Substance: PERINDOPRIL
     Indication: HYPERTENSION
     Dosage: 10 MILLIGRAM, QD
     Route: 048
     Dates: start: 1986
  2. AZACITIDINE. [Suspect]
     Active Substance: AZACITIDINE
     Dosage: 109 MILLIGRAM/SQ. METER
     Route: 058
     Dates: start: 20180611, end: 20180615
  3. AZACITIDINE. [Suspect]
     Active Substance: AZACITIDINE
     Dosage: 109 MILLIGRAM/SQ. METER
     Route: 058
     Dates: start: 20180618, end: 20180619
  4. AZACITIDINE. [Suspect]
     Active Substance: AZACITIDINE
     Indication: ACUTE MYELOID LEUKAEMIA
     Dosage: 119 MILLIGRAM/SQ. METER, QD
     Route: 058
     Dates: start: 20180514
  5. PLACEBO [Suspect]
     Active Substance: UNSPECIFIED INGREDIENT
     Indication: ACUTE MYELOID LEUKAEMIA
     Dosage: 500 MILLIGRAM, QD
     Route: 048
     Dates: start: 20180514
  6. APREPITANT. [Concomitant]
     Active Substance: APREPITANT
     Indication: NAUSEA
     Dosage: 125 MILLIGRAM
     Route: 048
     Dates: start: 20180514
  7. AZACITIDINE. [Suspect]
     Active Substance: AZACITIDINE
     Dosage: 119 MILLIGRAM/SQ. METER
     Route: 058
     Dates: start: 20180522, end: 20180523
  8. CRESTOR [Concomitant]
     Active Substance: ROSUVASTATIN CALCIUM
     Indication: HYPERCHOLESTEROLAEMIA
     Dosage: 5 MILLIGRAM, QD
     Route: 048
     Dates: start: 2003
  9. PANTOPRAZOLE [Concomitant]
     Active Substance: PANTOPRAZOLE
     Indication: ABDOMINAL PAIN UPPER
     Dosage: 20 MILLIGRAM, QD
     Route: 048
     Dates: start: 20180625
  10. AZACITIDINE. [Suspect]
     Active Substance: AZACITIDINE
     Dosage: 109 MILLIGRAM/SQ. METER
     Route: 058
     Dates: start: 20180709, end: 20180713
  11. AZACITIDINE. [Suspect]
     Active Substance: AZACITIDINE
     Dosage: 109 MILLIGRAM/SQ. METER
     Route: 058
     Dates: start: 20180716, end: 20180717

REACTIONS (1)
  - Pulmonary embolism [Not Recovered/Not Resolved]

NARRATIVE: CASE EVENT DATE: 20180918
